FAERS Safety Report 16992176 (Version 1)
Quarter: 2019Q4

REPORT INFORMATION
  Report Type: Spontaneous
  Country: US (occurrence: US)
  Receive Date: 20191105
  Receipt Date: 20191105
  Transmission Date: 20200122
  Serious: Yes (Death, Life-Threatening, Hospitalization)
  Sender: FDA-Public Use
  Company Number: US-EMCURE PHARMACEUTICALS LTD-2019-EPL-0986

PATIENT
  Age: 44 Year
  Sex: Female

DRUGS (4)
  1. ACETAMINOPHEN. [Suspect]
     Active Substance: ACETAMINOPHEN
     Indication: PRODUCT USED FOR UNKNOWN INDICATION
     Dosage: 6 DOSAGE FORM, SINGLE
  2. HYDROCHLOROTHIAZIDE. [Concomitant]
     Active Substance: HYDROCHLOROTHIAZIDE
     Indication: HYPERTENSION
  3. LEVOTHYROXINE. [Concomitant]
     Active Substance: LEVOTHYROXINE
     Indication: HYPOTHYROIDISM
  4. IBUPROFEN. [Concomitant]
     Active Substance: IBUPROFEN
     Dosage: 2 DOSAGE FORM
     Route: 065

REACTIONS (9)
  - Brain death [Fatal]
  - Toxicity to various agents [Fatal]
  - Hepatic encephalopathy [Unknown]
  - Areflexia [Unknown]
  - Unresponsive to stimuli [Unknown]
  - Seizure [Unknown]
  - Mental status changes [Unknown]
  - Brain herniation [Unknown]
  - Acute hepatic failure [Fatal]
